FAERS Safety Report 14756566 (Version 2)
Quarter: 2020Q1

REPORT INFORMATION
  Report Type: Spontaneous
  Country: US (occurrence: US)
  Receive Date: 20180413
  Receipt Date: 20200312
  Transmission Date: 20200409
  Serious: Yes (Other)
  Sender: FDA-Public Use
  Company Number: US-ASTRAZENECA-2018SE44975

PATIENT
  Age: 25969 Day
  Sex: Female
  Weight: 93.6 kg

DRUGS (17)
  1. ONGLYZA [Suspect]
     Active Substance: SAXAGLIPTIN HYDROCHLORIDE
     Indication: DIABETES MELLITUS
     Route: 048
     Dates: start: 2014
  2. LISINOPRIL. [Concomitant]
     Active Substance: LISINOPRIL
  3. ACARBOSE. [Concomitant]
     Active Substance: ACARBOSE
  4. FENOFIBRATE. [Concomitant]
     Active Substance: FENOFIBRATE
  5. METOPROLOL. [Concomitant]
     Active Substance: METOPROLOL
  6. HYDROCHLOROTHIAZIDE. [Concomitant]
     Active Substance: HYDROCHLOROTHIAZIDE
  7. ONGLYZA [Suspect]
     Active Substance: SAXAGLIPTIN HYDROCHLORIDE
     Indication: DIABETES MELLITUS
     Route: 048
     Dates: start: 20140730
  8. FUROSEMIDE. [Concomitant]
     Active Substance: FUROSEMIDE
  9. ATENOLOL. [Concomitant]
     Active Substance: ATENOLOL
  10. ONGLYZA [Suspect]
     Active Substance: SAXAGLIPTIN HYDROCHLORIDE
     Indication: DIABETES MELLITUS
     Route: 048
     Dates: start: 20160104
  11. GABAPENTIN. [Concomitant]
     Active Substance: GABAPENTIN
  12. LEVEMIR [Concomitant]
     Active Substance: INSULIN DETEMIR
  13. METFORMIN [Concomitant]
     Active Substance: METFORMIN HYDROCHLORIDE
  14. ASPIR [Concomitant]
     Active Substance: ASPIRIN
  15. DIGOXIN. [Concomitant]
     Active Substance: DIGOXIN
  16. MULTAQ [Concomitant]
     Active Substance: DRONEDARONE
  17. KOMBIGLYZE XR [Suspect]
     Active Substance: METFORMIN HYDROCHLORIDE\SAXAGLIPTIN HYDROCHLORIDE
     Indication: DIABETES MELLITUS
     Route: 048
     Dates: start: 2014

REACTIONS (5)
  - Cardiac failure congestive [Unknown]
  - Cardiac failure [Unknown]
  - Acute left ventricular failure [Unknown]
  - Cardiovascular disorder [Unknown]
  - Hypertensive heart disease [Unknown]

NARRATIVE: CASE EVENT DATE: 20150528
